FAERS Safety Report 7659408-3 (Version None)
Quarter: 2011Q3

REPORT INFORMATION
  Report Type: 
  Country: None (occurrence: None)
  Receive Date: 20110805
  Receipt Date: 20110725
  Transmission Date: 20111222
  Serious: Yes (Death, Other)
  Sender: FDA-Public Use
  Company Number: FR-PFIZER INC-2011166651

PATIENT
  Age: 48 Year
  Sex: Female

DRUGS (9)
  1. CYTARABINE [Suspect]
     Dosage: 1940 MG, 2X/DAY
     Route: 042
     Dates: start: 20080926, end: 20080928
  2. CERUBIDINE [Suspect]
     Indication: ACUTE MYELOID LEUKAEMIA
     Dosage: 60 MG/M2, 1X/DAY
     Route: 042
     Dates: start: 20080910, end: 20080912
  3. CYTARABINE [Suspect]
     Dosage: UNK
     Dates: start: 20080910, end: 20080917
  4. CYTARABINE [Suspect]
     Dosage: 1000 MG/M2, 2X/DAY
     Route: 042
     Dates: start: 20080926, end: 20080928
  5. CERUBIDINE [Suspect]
     Dosage: 35 MG/M2, 1X/DAY
     Route: 042
     Dates: start: 20080926, end: 20080928
  6. CERUBIDINE [Suspect]
     Dosage: 35 MG/M2, 1X/DAY
     Route: 042
     Dates: start: 20080926, end: 20080927
  7. GEMTUZUMAB OZOGAMICIN [Suspect]
     Indication: ACUTE MYELOID LEUKAEMIA
     Dosage: UNK
     Dates: start: 20080913
  8. GEMTUZUMAB OZOGAMICIN [Suspect]
     Dosage: UNK
     Route: 042
     Dates: start: 20080914, end: 20080914
  9. CYTARABINE [Suspect]
     Indication: ACUTE MYELOID LEUKAEMIA
     Dosage: 200 MG/M2, 1X/DAY
     Route: 042
     Dates: start: 20080910, end: 20080912

REACTIONS (3)
  - CYTOLYTIC HEPATITIS [None]
  - SEPSIS [None]
  - FUNGAL INFECTION [None]
